FAERS Safety Report 10191488 (Version 1)
Quarter: 2014Q2

REPORT INFORMATION
  Report Type: Spontaneous
  Country: US (occurrence: None)
  Receive Date: 20140522
  Receipt Date: 20140522
  Transmission Date: 20141212
  Serious: Yes (Other)
  Sender: FDA-Public Use
  Company Number: None

PATIENT
  Age: 56 Year
  Sex: Female

DRUGS (1)
  1. DULOXETINE [Suspect]
     Indication: FIBROMYALGIA
     Route: 048

REACTIONS (9)
  - Palpitations [None]
  - Abnormal dreams [None]
  - Product substitution issue [None]
  - Insomnia [None]
  - Flushing [None]
  - Rash [None]
  - Muscle spasms [None]
  - Myalgia [None]
  - Muscular weakness [None]
